FAERS Safety Report 23411956 (Version 4)
Quarter: 2024Q1

REPORT INFORMATION
  Report Type: Spontaneous
  Country: JP (occurrence: JP)
  Receive Date: 20240117
  Receipt Date: 20240326
  Transmission Date: 20240410
  Serious: Yes (Other)
  Sender: FDA-Public Use
  Company Number: JP-GSKJP-JP2023JPN181257

PATIENT
  Age: 66 Year
  Sex: Male

DRUGS (4)
  1. BOTOX [Suspect]
     Active Substance: ONABOTULINUMTOXINA
     Indication: Hypertonic bladder
     Dosage: TIME INTERVAL: AS NECESSARY: 100 IU
     Route: 065
     Dates: start: 20221207, end: 20221207
  2. SILODOSIN [Concomitant]
     Active Substance: SILODOSIN
     Indication: Benign prostatic hyperplasia
     Dosage: 4 MG, BID
     Route: 048
     Dates: start: 20221214, end: 20221228
  3. AMLODIPINE BESYLATE [Concomitant]
     Active Substance: AMLODIPINE BESYLATE
     Indication: Hypertension
     Dosage: 5 MG, BID
     Route: 048
     Dates: start: 20171205
  4. METHYLCOBALAMIN [Concomitant]
     Active Substance: METHYLCOBALAMIN
     Indication: Neuropathy peripheral
     Dosage: 500 UG, TID
     Route: 048
     Dates: start: 20221108

REACTIONS (4)
  - Neurogenic bladder [Recovering/Resolving]
  - Urinary retention [Recovering/Resolving]
  - Dysuria [Recovering/Resolving]
  - Hypotonic urinary bladder [Unknown]

NARRATIVE: CASE EVENT DATE: 20221219
